FAERS Safety Report 4823128-0 (Version None)
Quarter: 2005Q4

REPORT INFORMATION
  Report Type: 
  Country: None (occurrence: None)
  Receive Date: 20051108
  Receipt Date: 20051102
  Transmission Date: 20060501
  Serious: Yes (Death, Hospitalization, Other)
  Sender: FDA-Public Use
  Company Number: US-MERCK-0511USA00549

PATIENT
  Age: 44 Year
  Sex: Male

DRUGS (10)
  1. CRIXIVAN [Suspect]
     Indication: HIV INFECTION
     Route: 048
     Dates: start: 19980101, end: 20040901
  2. ZIDOVUDINE [Suspect]
     Route: 065
     Dates: start: 19980101
  3. ZIDOVUDINE [Suspect]
     Route: 065
     Dates: start: 20040901
  4. LAMIVUDINE [Suspect]
     Route: 065
     Dates: end: 20040901
  5. LAMIVUDINE [Suspect]
     Route: 065
     Dates: start: 20040901
  6. RITONAVIR [Concomitant]
     Route: 065
     Dates: start: 20030801, end: 20040901
  7. RITONAVIR [Concomitant]
     Route: 065
     Dates: start: 20040901
  8. ATAZANAVIR [Concomitant]
     Route: 065
     Dates: start: 20040901
  9. DIDANOSINE [Concomitant]
     Route: 065
     Dates: end: 20040901
  10. STAVUDINE [Suspect]
     Route: 065
     Dates: end: 20040901

REACTIONS (20)
  - ACUTE RESPIRATORY DISTRESS SYNDROME [None]
  - ANAEMIA [None]
  - CACHEXIA [None]
  - CARDIAC ARREST [None]
  - CARDIOLIPIN ANTIBODY POSITIVE [None]
  - DIARRHOEA [None]
  - DRUG TOXICITY [None]
  - DRY MOUTH [None]
  - EMBOLISM [None]
  - FATIGUE [None]
  - HERPES ZOSTER MULTI-DERMATOMAL [None]
  - HYPERBILIRUBINAEMIA [None]
  - LEG AMPUTATION [None]
  - MYALGIA [None]
  - PNEUMOCYSTIS JIROVECI PNEUMONIA [None]
  - PROTEIN S DECREASED [None]
  - PYREXIA [None]
  - RESPIRATORY FAILURE [None]
  - RETROVIRAL INFECTION [None]
  - WEIGHT DECREASED [None]
